FAERS Safety Report 14251234 (Version 1)
Quarter: 2017Q4

REPORT INFORMATION
  Report Type: Spontaneous
  Country: ZA (occurrence: ZA)
  Receive Date: 20171205
  Receipt Date: 20171205
  Transmission Date: 20180321
  Serious: Yes (Other)
  Sender: FDA-Public Use
  Company Number: ZA-PFIZER INC-2017515434

PATIENT
  Age: 70 Year
  Sex: Female
  Weight: 52 kg

DRUGS (1)
  1. METHOTREXATE. [Suspect]
     Active Substance: METHOTREXATE
     Dosage: 12.5 MG, WEEKLY
     Dates: start: 1998

REACTIONS (6)
  - Osteoporosis [Unknown]
  - Fowler^s syndrome [Unknown]
  - Peptic ulcer [Unknown]
  - Cerebrovascular accident [Unknown]
  - Neutropenia [Unknown]
  - Femur fracture [Unknown]

NARRATIVE: CASE EVENT DATE: 2000
